FAERS Safety Report 5886925-9 (Version None)
Quarter: 2008Q3

REPORT INFORMATION
  Report Type: 
  Country: None (occurrence: None)
  Receive Date: 20080915
  Receipt Date: 20080901
  Transmission Date: 20090109
  Serious: Yes (Hospitalization)
  Sender: FDA-Public Use
  Company Number: 2008S1015908

PATIENT
  Age: 13 Year
  Sex: Male

DRUGS (1)
  1. ISOTRETINOIN [Suspect]
     Indication: DRUG USE FOR UNKNOWN INDICATION
     Route: 048

REACTIONS (5)
  - EPISTAXIS [None]
  - GUILLAIN-BARRE SYNDROME [None]
  - HEADACHE [None]
  - LETHARGY [None]
  - PARESIS [None]
